FAERS Safety Report 7979158-3 (Version None)
Quarter: 2011Q4

REPORT INFORMATION
  Report Type: 
  Country: None (occurrence: None)
  Receive Date: 20111201
  Receipt Date: 20111116
  Transmission Date: 20120403
  Serious: Yes (Death, Life-Threatening, Hospitalization, Other)
  Sender: FDA-Public Use
  Company Number: 2008AL010606

PATIENT
  Age: 75 Year
  Sex: Female
  Weight: 81.6475 kg

DRUGS (41)
  1. ARIMIDEX [Concomitant]
  2. POTASSIUM CHLORIDE [Concomitant]
  3. ALBUTEROL [Concomitant]
  4. CLONIDINE [Concomitant]
  5. IMDUR [Concomitant]
  6. QUINAPRIL [Concomitant]
  7. LORTAB [Concomitant]
  8. XANAX [Concomitant]
  9. ACETAMINOPHEN [Concomitant]
  10. LIPITOR [Concomitant]
  11. METHOCARBAMOL [Concomitant]
  12. METOCLOPRAMIDE [Concomitant]
  13. COMBIVENT [Concomitant]
  14. BUMETANIDE [Concomitant]
  15. CEPHALEXIN [Concomitant]
  16. CIPROFLOXACIN [Concomitant]
  17. ISOSORBIDE DINITRATE [Concomitant]
  18. NITROGLYCERIN [Concomitant]
  19. VIOXX [Concomitant]
  20. COREG [Concomitant]
  21. ALLOPURINOL [Concomitant]
  22. AMOXICILLIN [Concomitant]
  23. HYDROCODONE [Concomitant]
  24. VITAMIN TAB [Concomitant]
  25. MEXILETINE HYDROCHLORIDE [Concomitant]
  26. METOLAZONE [Concomitant]
  27. MEOCLOPRAMIDE [Concomitant]
  28. LASIX [Concomitant]
  29. ZENICAL [Concomitant]
  30. DIGOXIN [Suspect]
     Indication: CARDIAC FAILURE CHRONIC
     Dosage: 125 MCG;QD
     Dates: start: 19980101, end: 20071113
  31. AMIODARONE HCL [Concomitant]
  32. ASPIRIN [Concomitant]
  33. GLIPIZIDE [Concomitant]
  34. HYDROXYZINE [Concomitant]
  35. IOPHEN-C [Concomitant]
  36. ACCUPRIL [Concomitant]
  37. ALPRAZOLAM [Concomitant]
  38. AZITHROMYCIN [Concomitant]
  39. CARVEDILOL [Concomitant]
  40. COLCHICINE [Concomitant]
  41. FUROSEMIDE [Concomitant]

REACTIONS (38)
  - DYSPHAGIA [None]
  - MYOCARDIAL INFARCTION [None]
  - VISION BLURRED [None]
  - BREAST CANCER [None]
  - ALOPECIA [None]
  - CARDIAC FAILURE CONGESTIVE [None]
  - DEPRESSION [None]
  - RENAL FAILURE [None]
  - METASTASES TO LYMPH NODES [None]
  - TREATMENT NONCOMPLIANCE [None]
  - DIABETES MELLITUS [None]
  - CARDIAC ARREST [None]
  - GOUTY ARTHRITIS [None]
  - VENTRICULAR TACHYCARDIA [None]
  - RESPIRATORY DISTRESS [None]
  - TOXICITY TO VARIOUS AGENTS [None]
  - CORONARY ARTERY DISEASE [None]
  - ANAEMIA OF CHRONIC DISEASE [None]
  - LEUKOCYTOSIS [None]
  - PAIN IN EXTREMITY [None]
  - PNEUMONIA [None]
  - PULMONARY CONGESTION [None]
  - ANXIETY [None]
  - ANGINA PECTORIS [None]
  - HYPERTENSION [None]
  - SINUS TACHYCARDIA [None]
  - SUDDEN CARDIAC DEATH [None]
  - PAIN [None]
  - MULTIPLE INJURIES [None]
  - ECONOMIC PROBLEM [None]
  - ADNEXA UTERI MASS [None]
  - DYSLIPIDAEMIA [None]
  - PULMONARY OEDEMA [None]
  - IMPAIRED WORK ABILITY [None]
  - BACK PAIN [None]
  - BLOOD PRESSURE SYSTOLIC INCREASED [None]
  - DRY MOUTH [None]
  - SMALL INTESTINAL OBSTRUCTION [None]
